FAERS Safety Report 9500914 (Version 1)
Quarter: 2013Q1

REPORT INFORMATION
  Report Type: Spontaneous
  Country: US (occurrence: None)
  Receive Date: 20130107
  Receipt Date: 20130107
  Transmission Date: 20140127
  Serious: No
  Sender: FDA-Public Use
  Company Number: PHEH2012US019420

PATIENT
  Age: 37 Year
  Sex: Male
  Weight: 68 kg

DRUGS (3)
  1. GILENYA (FTY) CAPSULE, 0.5MG [Suspect]
     Indication: MULTIPLE SCLEROSIS
     Route: 048
     Dates: start: 20120521
  2. CIALIS (TADALAFIL) [Concomitant]
  3. OXYBUTIN (OXYBUTYNIN HYDROCHLORIDE) [Concomitant]

REACTIONS (3)
  - Sensation of heaviness [None]
  - Condition aggravated [None]
  - Pain in extremity [None]
